FAERS Safety Report 12572109 (Version 4)
Quarter: 2016Q4

REPORT INFORMATION
  Report Type: Report from Study
  Country: BE (occurrence: BE)
  Receive Date: 20160719
  Receipt Date: 20161118
  Transmission Date: 20170207
  Serious: Yes (Death, Other)
  Sender: FDA-Public Use
  Company Number: PHHY2016BE098551

PATIENT
  Age: 54 Year
  Sex: Female

DRUGS (3)
  1. LDK378 [Suspect]
     Active Substance: CERITINIB
     Indication: LUNG ADENOCARCINOMA
     Dosage: 300 MG, QD (DAILY)
     Route: 065
     Dates: start: 20160609
  2. LDK378 [Suspect]
     Active Substance: CERITINIB
     Dosage: 450 MG, QD
     Route: 065
  3. LDK378 [Suspect]
     Active Substance: CERITINIB
     Dosage: 600 MG, QD
     Route: 065

REACTIONS (4)
  - Malignant neoplasm progression [Fatal]
  - Major depression [Not Recovered/Not Resolved]
  - Metastases to liver [Unknown]
  - Lung adenocarcinoma [Fatal]

NARRATIVE: CASE EVENT DATE: 201606
